FAERS Safety Report 8926637 (Version 3)
Quarter: 2012Q4

REPORT INFORMATION
  Report Type: 
  Country: IT (occurrence: IT)
  Receive Date: 20121127
  Receipt Date: 20121221
  Transmission Date: 20130627
  Serious: Yes (Hospitalization, Other)
  Sender: FDA-Public Use
  Company Number: PHHY2012IT107579

PATIENT
  Age: 24 Year
  Sex: Female

DRUGS (3)
  1. ALPRAZOLAM [Suspect]
     Indication: DEPRESSION
     Dosage: 1.5 mg, daily
     Route: 048
     Dates: start: 20120124, end: 20120207
  2. FLUOXEREN [Suspect]
     Indication: DEPRESSIVE SYMPTOM
     Dosage: 20 mg, UNK
     Route: 048
     Dates: start: 20120124, end: 20120207
  3. ALPRAZOLAM [Suspect]
     Indication: SUICIDE ATTEMPT
     Dosage: 20 ml, UNK
     Route: 048
     Dates: start: 20120207, end: 20120207

REACTIONS (2)
  - Sopor [Unknown]
  - Suicide attempt [Unknown]
